FAERS Safety Report 6206116-1 (Version None)
Quarter: 2009Q2

REPORT INFORMATION
  Report Type: 
  Country: None (occurrence: None)
  Receive Date: 20090528
  Receipt Date: 20090522
  Transmission Date: 20091009
  Serious: Yes (Hospitalization, Other)
  Sender: FDA-Public Use
  Company Number: CA-ASTRAZENECA-2009UW13104

PATIENT
  Sex: Female

DRUGS (3)
  1. ARIMIDEX [Suspect]
     Route: 048
  2. ATENOLOL [Concomitant]
  3. APO-TRIAZIDE [Concomitant]

REACTIONS (6)
  - BREAST DISCOLOURATION [None]
  - CARDIOMEGALY [None]
  - DYSPNOEA [None]
  - HUMERUS FRACTURE [None]
  - HYPOAESTHESIA [None]
  - OEDEMA PERIPHERAL [None]
